FAERS Safety Report 24768485 (Version 1)
Quarter: 2024Q4

REPORT INFORMATION
  Report Type: Report from Study
  Country: CA (occurrence: CA)
  Receive Date: 20241223
  Receipt Date: 20241223
  Transmission Date: 20250114
  Serious: Yes (Other)
  Sender: TAKEDA
  Company Number: CA-TAKEDA-2024TUS033493

PATIENT
  Sex: Male

DRUGS (2)
  1. VEDOLIZUMAB [Suspect]
     Active Substance: VEDOLIZUMAB
     Indication: Crohn^s disease
     Dosage: 300 MILLIGRAM
  2. VEDOLIZUMAB [Suspect]
     Active Substance: VEDOLIZUMAB
     Indication: Crohn^s disease
     Dosage: 108 MILLIGRAM, Q2WEEKS
     Dates: start: 20240423

REACTIONS (7)
  - Large intestinal ulcer [Unknown]
  - Large intestine polyp [Unknown]
  - Faeces soft [Unknown]
  - Diarrhoea [Unknown]
  - Defaecation urgency [Unknown]
  - Malaise [Unknown]
  - Abdominal pain [Recovered/Resolved]
